FAERS Safety Report 5709046-4 (Version None)
Quarter: 2008Q2

REPORT INFORMATION
  Report Type: 
  Country: None (occurrence: None)
  Receive Date: 20080416
  Receipt Date: 20080416
  Transmission Date: 20081010
  Serious: Yes (Other)
  Sender: FDA-Public Use
  Company Number: None

PATIENT
  Sex: Male
  Weight: 97.5234 kg

DRUGS (1)
  1. MORPHINE [Suspect]
     Indication: PAIN
     Dosage: 25MG/ML@ 14.5MG/DAY CONTINOUS 037
     Dates: start: 20050101

REACTIONS (5)
  - CATHETER RELATED COMPLICATION [None]
  - DEVICE MALFUNCTION [None]
  - DRUG WITHDRAWAL SYNDROME [None]
  - OVERDOSE [None]
  - PHARMACEUTICAL PRODUCT COMPLAINT [None]
